FAERS Safety Report 7966989-9 (Version None)
Quarter: 2011Q4

REPORT INFORMATION
  Report Type: 
  Country: None (occurrence: None)
  Receive Date: 20111209
  Receipt Date: 20111129
  Transmission Date: 20120403
  Serious: Yes (Other)
  Sender: FDA-Public Use
  Company Number: CA-JNJFOC-20111201337

PATIENT
  Sex: Male
  Weight: 90 kg

DRUGS (1)
  1. REMICADE [Suspect]
     Indication: CROHN'S DISEASE
     Dosage: 32ND INFUSION
     Route: 042

REACTIONS (5)
  - INFUSION RELATED REACTION [None]
  - TACHYCARDIA [None]
  - DISCOMFORT [None]
  - PALPITATIONS [None]
  - HYPOAESTHESIA [None]
